FAERS Safety Report 23032196 (Version 1)
Quarter: 2023Q4

REPORT INFORMATION
  Report Type: Spontaneous
  Country: CA (occurrence: CA)
  Receive Date: 20231005
  Receipt Date: 20231005
  Transmission Date: 20240110
  Serious: Yes (Hospitalization, Other)
  Sender: FDA-Public Use
  Company Number: CA-002147023-NVSC2022CA263947

PATIENT
  Sex: Female

DRUGS (7)
  1. MONTELUKAST [Suspect]
     Active Substance: MONTELUKAST SODIUM
     Indication: Asthma
     Dosage: 10 MG, QD (1 X 10MG)
     Route: 048
     Dates: start: 2014
  2. NUCALA [Concomitant]
     Active Substance: MEPOLIZUMAB
     Indication: Secondary amyloidosis
     Route: 058
  3. PREDNISONE [Concomitant]
     Active Substance: PREDNISONE
     Indication: Asthma
     Dosage: 10 MG, QD
     Route: 048
     Dates: start: 202205
  4. Reactine [Concomitant]
     Indication: Hypersensitivity
     Dosage: 20 MG, QD
     Route: 048
     Dates: start: 2020
  5. SPIRIVA [Concomitant]
     Active Substance: TIOTROPIUM BROMIDE MONOHYDRATE
     Indication: Asthma
     Dosage: 1 UG, QD
     Route: 055
     Dates: start: 202207
  6. SYMBICORT [Concomitant]
     Active Substance: BUDESONIDE\FORMOTEROL FUMARATE DIHYDRATE
     Indication: Asthma
     Dosage: 200 UG, TID
     Route: 055
     Dates: start: 202207
  7. VENTOLIN [Concomitant]
     Active Substance: ALBUTEROL SULFATE
     Indication: Asthma
     Dosage: UNK, QID (4)
     Route: 055
     Dates: start: 2000

REACTIONS (7)
  - Neuroendocrine carcinoma [Unknown]
  - Dyspnoea [Unknown]
  - Wheezing [Unknown]
  - Middle insomnia [Unknown]
  - Stress [Unknown]
  - Condition aggravated [Unknown]
  - Drug ineffective [Unknown]
